FAERS Safety Report 9752280 (Version 1)
Quarter: 2013Q4

REPORT INFORMATION
  Report Type: Spontaneous
  Country: US (occurrence: None)
  Receive Date: 20131211
  Receipt Date: 20131211
  Transmission Date: 20140711
  Serious: No
  Sender: FDA-Public Use
  Company Number: None

PATIENT
  Age: 63 Year
  Sex: Male

DRUGS (1)
  1. XTANDI 40MG [Suspect]
     Route: 048

REACTIONS (2)
  - Dysgeusia [None]
  - Product odour abnormal [None]
